FAERS Safety Report 19853528 (Version 1)
Quarter: 2021Q3

REPORT INFORMATION
  Report Type: Spontaneous
  Country: CZ (occurrence: CZ)
  Receive Date: 20210919
  Receipt Date: 20210919
  Transmission Date: 20211014
  Serious: Yes (Death, Life-Threatening, Hospitalization, Other)
  Sender: FDA-Public Use
  Company Number: CZ-BRISTOL-MYERS SQUIBB COMPANY-BMS-2021-092334

PATIENT
  Age: 67 Year
  Sex: Female
  Weight: 54 kg

DRUGS (2)
  1. YERVOY [Suspect]
     Active Substance: IPILIMUMAB
     Indication: METASTASES TO LUNG
     Dosage: 1 MILLIGRAM/KILOGRAM
     Route: 042
     Dates: start: 20210803, end: 20210824
  2. OPDIVO [Suspect]
     Active Substance: NIVOLUMAB
     Indication: METASTASES TO LUNG
     Dosage: 3 MILLIGRAM/KILOGRAM
     Route: 042
     Dates: start: 20210803, end: 20210824

REACTIONS (23)
  - Intestinal gangrene [Fatal]
  - Mineral metabolism disorder [Unknown]
  - Acidosis [Unknown]
  - Hypochloraemia [Unknown]
  - Hypotension [Unknown]
  - Abdominal pain upper [Unknown]
  - Anuria [Unknown]
  - Dyspnoea [Unknown]
  - Nausea [Unknown]
  - Sepsis [Fatal]
  - Colitis [Unknown]
  - Peritonitis [Fatal]
  - Diarrhoea [Unknown]
  - Large intestine perforation [Fatal]
  - Septic shock [Fatal]
  - Hyponatraemia [Unknown]
  - Cardiovascular disorder [Unknown]
  - Condition aggravated [Unknown]
  - Pyrexia [Unknown]
  - Abnormal loss of weight [Unknown]
  - Multiple organ dysfunction syndrome [Fatal]
  - Dehydration [Unknown]
  - Decreased appetite [Unknown]

NARRATIVE: CASE EVENT DATE: 202108
